FAERS Safety Report 21415970 (Version 1)
Quarter: 2022Q4

REPORT INFORMATION
  Report Type: Spontaneous
  Country: US (occurrence: None)
  Receive Date: 20221005
  Receipt Date: 20221005
  Transmission Date: 20230113
  Serious: Yes (Other)
  Sender: FDA-Public Use
  Company Number: None

PATIENT
  Age: 42 Year
  Sex: Male
  Weight: 94.35 kg

DRUGS (1)
  1. SEROQUEL [Suspect]
     Active Substance: QUETIAPINE FUMARATE
     Indication: Agitation
     Dosage: FREQUENCY : TWICE A DAY;?
     Route: 048
     Dates: start: 20221004, end: 20221005

REACTIONS (2)
  - Bradycardia [None]
  - Craniocerebral injury [None]

NARRATIVE: CASE EVENT DATE: 20221004
